FAERS Safety Report 5845543-9 (Version None)
Quarter: 2008Q3

REPORT INFORMATION
  Report Type: 
  Country: None (occurrence: None)
  Receive Date: 20080814
  Receipt Date: 20080806
  Transmission Date: 20090109
  Serious: Yes (Hospitalization)
  Sender: FDA-Public Use
  Company Number: US-WYE-H04336508

PATIENT
  Sex: Male
  Weight: 115.77 kg

DRUGS (8)
  1. PRISTIQ [Suspect]
     Indication: DEPRESSION
     Route: 048
     Dates: start: 20080501, end: 20080524
  2. ZETIA [Concomitant]
     Indication: BLOOD CHOLESTEROL INCREASED
     Dosage: UNKNOWN
  3. NIASPAN [Concomitant]
     Indication: BLOOD CHOLESTEROL INCREASED
     Dosage: UNKNOWN
  4. PROVIGIL [Concomitant]
     Indication: SLEEP APNOEA SYNDROME
     Dosage: UNKNOWN
  5. ALTACE [Concomitant]
     Indication: HYPERTENSION
     Dosage: UNKNOWN
  6. CELEBREX [Concomitant]
     Indication: ARTHRITIS
     Dosage: UNKNOWN
  7. OMEPRAZOLE [Concomitant]
     Indication: GASTROOESOPHAGEAL REFLUX DISEASE
     Dosage: UNKNOWN
  8. LIPITOR [Concomitant]
     Indication: BLOOD CHOLESTEROL INCREASED
     Dosage: UNKNOWN

REACTIONS (6)
  - AGITATION [None]
  - BLOOD PRESSURE INCREASED [None]
  - CHEST DISCOMFORT [None]
  - COLD SWEAT [None]
  - CORONARY ARTERY OCCLUSION [None]
  - FLUSHING [None]
